FAERS Safety Report 18511625 (Version 2)
Quarter: 2020Q4

REPORT INFORMATION
  Report Type: Report from Study
  Country: FR (occurrence: FR)
  Receive Date: 20201117
  Receipt Date: 20201203
  Transmission Date: 20210114
  Serious: Yes (Other)
  Sender: FDA-Public Use
  Company Number: FR-BIOVITRUM-2020FR6412

PATIENT
  Age: 89 Year
  Sex: Male

DRUGS (13)
  1. KINERET [Suspect]
     Active Substance: ANAKINRA
     Dosage: 100 MG/ 0.67 ML
     Route: 042
     Dates: start: 20200413, end: 20200414
  2. LASILIX [Concomitant]
     Active Substance: FUROSEMIDE
  3. LANSOPRAZOLE. [Concomitant]
     Active Substance: LANSOPRAZOLE
  4. OROZAMUDOL [Concomitant]
     Active Substance: TRAMADOL
  5. ELIQUIS [Concomitant]
     Active Substance: APIXABAN
  6. KINERET [Suspect]
     Active Substance: ANAKINRA
     Dosage: 100 MG/ 0.67 ML
     Route: 042
     Dates: start: 20200414, end: 20200414
  7. MACROGOL [Concomitant]
     Active Substance: POLYETHYLENE GLYCOLS
  8. ALPRAZOLAM. [Concomitant]
     Active Substance: ALPRAZOLAM
  9. KINERET [Suspect]
     Active Substance: ANAKINRA
     Indication: CORONAVIRUS INFECTION
     Dosage: 100 MG/ 0.67 ML
     Route: 042
     Dates: start: 20200410
  10. BISOPROLOL [Concomitant]
     Active Substance: BISOPROLOL
  11. MAGNESPASMYL [Concomitant]
  12. DIFFU K [Concomitant]
     Active Substance: POTASSIUM CHLORIDE
  13. SPASFON [Concomitant]

REACTIONS (2)
  - Cholestasis [Not Recovered/Not Resolved]
  - Hepatocellular injury [Not Recovered/Not Resolved]

NARRATIVE: CASE EVENT DATE: 20200415
